FAERS Safety Report 10640297 (Version 1)
Quarter: 2014Q4

REPORT INFORMATION
  Report Type: Spontaneous
  Country: GB (occurrence: None)
  Receive Date: 20141205
  Receipt Date: 20141205
  Transmission Date: 20150529
  Serious: Yes (Hospitalization, Other)
  Sender: FDA-Public Use
  Company Number: GB-ZYDUS-005815

PATIENT
  Age: 59 Year
  Sex: Male

DRUGS (1)
  1. METFORMIN [Suspect]
     Active Substance: METFORMIN HYDROCHLORIDE
     Indication: TYPE 2 DIABETES MELLITUS

REACTIONS (8)
  - Hypoglycaemia [None]
  - Acute kidney injury [None]
  - Lethargy [None]
  - Diarrhoea [None]
  - Confusional state [None]
  - Vomiting [None]
  - Cardiac arrest [None]
  - Lactic acidosis [None]
